FAERS Safety Report 25970587 (Version 1)
Quarter: 2025Q4

REPORT INFORMATION
  Report Type: Spontaneous
  Country: US (occurrence: US)
  Receive Date: 20251028
  Receipt Date: 20251028
  Transmission Date: 20260117
  Serious: Yes (Other)
  Sender: COOPERSURGICAL
  Company Number: US-COOPERSURGICAL, INC.-2025CPS007530

PATIENT
  Age: 45 Year
  Sex: Female
  Weight: 59.864 kg

DRUGS (1)
  1. PARAGARD T 380A [Suspect]
     Active Substance: COPPER
     Indication: Contraception
     Dosage: UNK
     Route: 015
     Dates: start: 20121120

REACTIONS (17)
  - Reproductive complication associated with device [Not Recovered/Not Resolved]
  - Infertility female [Not Recovered/Not Resolved]
  - Device breakage [Not Recovered/Not Resolved]
  - Foreign body in reproductive tract [Not Recovered/Not Resolved]
  - Complication of device removal [Not Recovered/Not Resolved]
  - Embedded device [Not Recovered/Not Resolved]
  - Emotional distress [Unknown]
  - Complication associated with device [Recovered/Resolved]
  - Pollakiuria [Unknown]
  - Urinary tract infection [Unknown]
  - Dysuria [Unknown]
  - Fear [Not Recovered/Not Resolved]
  - Uterine prolapse [Unknown]
  - Device dislocation [Not Recovered/Not Resolved]
  - Pelvic pain [Unknown]
  - Heavy menstrual bleeding [Recovered/Resolved]
  - Abdominal pain lower [Unknown]

NARRATIVE: CASE EVENT DATE: 20140101
